FAERS Safety Report 4932309-7 (Version None)
Quarter: 2006Q1

REPORT INFORMATION
  Report Type: 
  Country: None (occurrence: None)
  Receive Date: 20060228
  Receipt Date: 20060224
  Transmission Date: 20060701
  Serious: Yes (Hospitalization)
  Sender: FDA-Public Use
  Company Number: TCI2006A00283

PATIENT
  Age: 60 Year
  Sex: Female

DRUGS (2)
  1. TAKEPRON CAPSULE 30 (LANSOPRAZOLE ) (CAPSULES) [Suspect]
     Indication: GASTRIC ULCER
     Dosage: 30 MG (30 MG, 1 D) PER ORAL
     Route: 048
     Dates: start: 20051228, end: 20060116
  2. MUCOSTA (REBAMIPIDE) (PREPARATION FOR ORAL USE (NOS) ) [Concomitant]

REACTIONS (8)
  - EYELID OEDEMA [None]
  - HYPERSENSITIVITY [None]
  - OEDEMA [None]
  - OEDEMA PERIPHERAL [None]
  - PRURITUS [None]
  - RASH [None]
  - RENAL FAILURE ACUTE [None]
  - WEIGHT INCREASED [None]
